FAERS Safety Report 4441381-2 (Version None)
Quarter: 2004Q3

REPORT INFORMATION
  Report Type: 
  Country: None (occurrence: None)
  Receive Date: 20040728
  Receipt Date: 20040507
  Transmission Date: 20050211
  Serious: No
  Sender: FDA-Public Use
  Company Number: USA040566982

PATIENT
  Age: 7 Year
  Sex: Male
  Weight: 22 kg

DRUGS (2)
  1. STRATTERA [Suspect]
     Indication: ATTENTION DEFICIT/HYPERACTIVITY DISORDER
     Dosage: 25 MG DAY
     Dates: start: 20031225
  2. STRATTERA [Suspect]
     Indication: TOURETTE'S DISORDER
     Dosage: 25 MG DAY
     Dates: start: 20031225

REACTIONS (3)
  - DRUG INEFFECTIVE [None]
  - EPISTAXIS [None]
  - LETHARGY [None]
